FAERS Safety Report 5126219-2 (Version None)
Quarter: 2006Q3

REPORT INFORMATION
  Report Type: 
  Country: None (occurrence: None)
  Receive Date: 20060824
  Receipt Date: 20060425
  Transmission Date: 20061208
  Serious: Yes (Life-Threatening)
  Sender: FDA-Public Use
  Company Number: WAES 0604USA03829

PATIENT
  Age: 58 Year
  Sex: Female

DRUGS (8)
  1. VYTORIN [Suspect]
     Indication: HYPERCHOLESTEROLAEMIA
     Dosage: 10-10 MG /DAILY/PO
     Route: 048
     Dates: start: 20060101, end: 20060424
  2. MICARDIS [Concomitant]
  3. OS-CAL [Concomitant]
  4. PREMARIN [Concomitant]
  5. ALPRAZOLAM [Concomitant]
  6. CLONAZEPAM [Concomitant]
  7. CLONIDINE [Concomitant]
  8. LEVOTHYROXINE SODIUM [Concomitant]

REACTIONS (2)
  - ANAPHYLACTIC REACTION [None]
  - ANGIONEUROTIC OEDEMA [None]
